FAERS Safety Report 21857041 (Version 2)
Quarter: 2023Q1

REPORT INFORMATION
  Report Type: Spontaneous
  Country: GR (occurrence: GR)
  Receive Date: 20230113
  Receipt Date: 20230207
  Transmission Date: 20230417
  Serious: Yes (Life-Threatening, Hospitalization, Other)
  Sender: FDA-Public Use
  Company Number: GR-EMA-DD-20230111-7182781-073011

PATIENT
  Age: 58 Year
  Sex: Male

DRUGS (3)
  1. ANAKINRA [Suspect]
     Active Substance: ANAKINRA
     Indication: Still^s disease
     Dosage: UNK
  2. METHOTREXATE SODIUM [Suspect]
     Active Substance: METHOTREXATE SODIUM
     Indication: Still^s disease
     Dosage: UNK
  3. METHYLPREDNISOLONE [Suspect]
     Active Substance: METHYLPREDNISOLONE
     Indication: Still^s disease
     Dosage: UNK

REACTIONS (11)
  - Atrioventricular block complete [Recovered/Resolved]
  - Infectious pleural effusion [Unknown]
  - Subarachnoid haemorrhage [Unknown]
  - Septic shock [Recovered/Resolved]
  - Staphylococcal bacteraemia [Recovered/Resolved]
  - Fungaemia [Recovered/Resolved]
  - Staphylococcal sepsis [Recovered/Resolved]
  - Bacteraemia [Recovered/Resolved]
  - Candida infection [Recovered/Resolved]
  - Condition aggravated [Recovered/Resolved]
  - Off label use [Unknown]
